FAERS Safety Report 12410261 (Version 1)
Quarter: 2016Q2

REPORT INFORMATION
  Report Type: Spontaneous
  Country: US (occurrence: US)
  Receive Date: 20160527
  Receipt Date: 20160527
  Transmission Date: 20160815
  Serious: No
  Sender: FDA-Public Use
  Company Number: US-AMGEN-USASP2016066153

PATIENT
  Age: 54 Year
  Sex: Female

DRUGS (3)
  1. DICLOFEN P [Concomitant]
     Dosage: 50 MG, UNK
  2. TAZORAC [Concomitant]
     Active Substance: TAZAROTENE
     Dosage: UNK
  3. ENBREL [Suspect]
     Active Substance: ETANERCEPT
     Indication: PRODUCT USED FOR UNKNOWN INDICATION
     Dosage: 50 MG, QWK
     Route: 058
     Dates: start: 20160101

REACTIONS (2)
  - Drug ineffective [Not Recovered/Not Resolved]
  - Influenza [Not Recovered/Not Resolved]

NARRATIVE: CASE EVENT DATE: 201605
